FAERS Safety Report 24096954 (Version 1)
Quarter: 2024Q3

REPORT INFORMATION
  Report Type: Spontaneous
  Country: US (occurrence: US)
  Receive Date: 20240716
  Receipt Date: 20240716
  Transmission Date: 20241016
  Serious: No
  Sender: GRIFOLS
  Company Number: US-IGSA-BIG0026212

PATIENT
  Sex: Male

DRUGS (4)
  1. GAMUNEX-C [Suspect]
     Active Substance: HUMAN IMMUNOGLOBULIN G
     Indication: Immunodeficiency common variable
     Dosage: 120 GRAM, Q.6WK.
     Route: 042
     Dates: start: 202310
  2. CLARITHROMYCIN [Concomitant]
     Active Substance: CLARITHROMYCIN
  3. DEXAMETHASONE [Concomitant]
     Active Substance: DEXAMETHASONE
  4. HEPARIN [Concomitant]
     Active Substance: HEPARIN SODIUM

REACTIONS (2)
  - Peripheral swelling [Recovered/Resolved]
  - Pain in extremity [Recovered/Resolved]
